FAERS Safety Report 5437605-5 (Version None)
Quarter: 2007Q3

REPORT INFORMATION
  Report Type: 
  Country: None (occurrence: None)
  Receive Date: 20070831
  Receipt Date: 20070821
  Transmission Date: 20080115
  Serious: Yes (Hospitalization, Other)
  Sender: FDA-Public Use
  Company Number: US-ROCHE-495935

PATIENT
  Age: 16 Year
  Sex: Male
  Weight: 97.5 kg

DRUGS (1)
  1. ACCUTANE [Suspect]
     Indication: ACNE
     Route: 065
     Dates: start: 20000501, end: 20000901

REACTIONS (5)
  - CROHN'S DISEASE [None]
  - EMOTIONAL DISORDER [None]
  - EMOTIONAL DISTRESS [None]
  - ILEAL STENOSIS [None]
  - INFLAMMATORY BOWEL DISEASE [None]
